FAERS Safety Report 4522593-6 (Version None)
Quarter: 2004Q4

REPORT INFORMATION
  Report Type: 
  Country: None (occurrence: None)
  Receive Date: 20041207
  Receipt Date: 20041124
  Transmission Date: 20050328
  Serious: Yes (Life-Threatening, Hospitalization)
  Sender: FDA-Public Use
  Company Number: 2003176595DE

PATIENT
  Age: 50 Year
  Sex: Male
  Weight: 69 kg

DRUGS (3)
  1. LEVODOPA (LEVODOPA) [Suspect]
     Indication: RESTLESS LEGS SYNDROME
     Dates: start: 20030903, end: 20030911
  2. LISINOPRIL [Concomitant]
  3. CALCIUM WITH VITAMIN D (CALCIUM PHOSPHATE, CALCIUM  SODIUM LACTATE, ER [Concomitant]

REACTIONS (6)
  - BACK PAIN [None]
  - CONDITION AGGRAVATED [None]
  - DEPRESSION [None]
  - HYPOTHYROIDISM [None]
  - SUICIDAL IDEATION [None]
  - UNEVALUABLE EVENT [None]
